APPROVED DRUG PRODUCT: HYDROCHLOROTHIAZIDE
Active Ingredient: HYDROCHLOROTHIAZIDE
Strength: 12.5MG
Dosage Form/Route: CAPSULE;ORAL
Application: A077885 | Product #001
Applicant: HIKMA INTERNATIONAL PHARMACEUTICALS LLC
Approved: Nov 26, 2007 | RLD: No | RS: No | Type: DISCN